FAERS Safety Report 12613042 (Version 1)
Quarter: 2016Q3

REPORT INFORMATION
  Report Type: Spontaneous
  Country: FR (occurrence: FR)
  Receive Date: 20160802
  Receipt Date: 20160802
  Transmission Date: 20161109
  Serious: Yes (Other)
  Sender: FDA-Public Use
  Company Number: FR-AMGEN-FRASP2016097684

PATIENT
  Age: 67 Year
  Sex: Female

DRUGS (2)
  1. ENBREL [Suspect]
     Active Substance: ETANERCEPT
     Indication: RHEUMATOID ARTHRITIS
     Dosage: 50 MG, WEEKLY
     Route: 065
  2. PREDNISONE. [Concomitant]
     Active Substance: PREDNISONE
     Dosage: 10 MG, DAILY

REACTIONS (1)
  - Diverticulitis [Unknown]
